FAERS Safety Report 9838282 (Version 3)
Quarter: 2014Q1

REPORT INFORMATION
  Report Type: Spontaneous
  Country: US (occurrence: US)
  Receive Date: 20140123
  Receipt Date: 20140207
  Transmission Date: 20141002
  Serious: Yes (Hospitalization, Other)
  Sender: FDA-Public Use
  Company Number: US-009507513-1401USA007940

PATIENT
  Sex: Female

DRUGS (2)
  1. VYTORIN [Suspect]
     Dosage: DOSE:10/20MG
     Route: 048
     Dates: start: 201101
  2. Z-PAK [Concomitant]
     Dosage: UNK
     Route: 048
     Dates: start: 2013

REACTIONS (1)
  - Rhabdomyolysis [Unknown]
